FAERS Safety Report 21816847 (Version 1)
Quarter: 2023Q1

REPORT INFORMATION
  Report Type: Spontaneous
  Country: US (occurrence: None)
  Receive Date: 20230103
  Receipt Date: 20230103
  Transmission Date: 20230418
  Serious: Yes (Death)
  Sender: FDA-Public Use
  Company Number: None

PATIENT
  Sex: Female

DRUGS (4)
  1. RAYALDEE [Suspect]
     Active Substance: CALCIFEDIOL
     Indication: Hyperparathyroidism
     Dosage: FREQUENCY : DAILY;?
     Route: 048
     Dates: start: 20210217, end: 20221230
  2. Terazosin 5mg [Concomitant]
     Dates: start: 20201217, end: 20221230
  3. TACROLIMUS [Concomitant]
     Active Substance: TACROLIMUS
     Dates: start: 20200831, end: 20221230
  4. MYCOPHENOLIC ACID [Concomitant]
     Active Substance: MYCOPHENOLIC ACID
     Dates: start: 20210217, end: 20221230

REACTIONS (1)
  - Death [None]
